FAERS Safety Report 10664810 (Version 1)
Quarter: 2014Q4

REPORT INFORMATION
  Report Type: Spontaneous
  Country: TW (occurrence: TW)
  Receive Date: 20141219
  Receipt Date: 20141219
  Transmission Date: 20150529
  Serious: Yes (Other)
  Sender: FDA-Public Use
  Company Number: PHHY2014TW164080

PATIENT
  Age: 86 Year
  Sex: Male

DRUGS (1)
  1. DICLOFENAC [Suspect]
     Active Substance: DICLOFENAC
     Indication: BACK PAIN
     Dosage: 25 MG, UNK
     Route: 065

REACTIONS (9)
  - Skin burning sensation [Recovering/Resolving]
  - Dermatitis bullous [Recovering/Resolving]
  - Blister [Recovering/Resolving]
  - Drug eruption [Recovering/Resolving]
  - Rash [Recovering/Resolving]
  - Skin erosion [Recovering/Resolving]
  - Skin plaque [Recovering/Resolving]
  - Pruritus [Recovering/Resolving]
  - Penile plaque [Recovering/Resolving]
